FAERS Safety Report 11645123 (Version 2)
Quarter: 2015Q4

REPORT INFORMATION
  Report Type: Spontaneous
  Country: CH (occurrence: CH)
  Receive Date: 20151020
  Receipt Date: 20151023
  Transmission Date: 20160304
  Serious: Yes (Other)
  Sender: FDA-Public Use
  Company Number: CH-TEVA-599980ISR

PATIENT
  Age: 8 Year
  Sex: Female
  Weight: 47 kg

DRUGS (15)
  1. CISPLATIN. [Interacting]
     Active Substance: CISPLATIN
     Indication: ADRENOCORTICAL CARCINOMA
     Dosage: 66 MILLIGRAM DAILY; 5TH CYCLE OF CHEMOTHERAPY
     Route: 041
     Dates: start: 20150907, end: 20150908
  2. ETOPOSIDE. [Suspect]
     Active Substance: ETOPOSIDE
     Indication: ADRENOCORTICAL CARCINOMA
     Dosage: 130 MILLIGRAM DAILY; 5TH CYCLE OF CHEMOTHERAPY
     Route: 041
     Dates: start: 20150907, end: 20150909
  3. BACTRIM [Concomitant]
     Active Substance: SULFAMETHOXAZOLE\TRIMETHOPRIM
     Dosage: CONTINUING
     Route: 048
     Dates: start: 201507
  4. DOXORUBICIN [Suspect]
     Active Substance: DOXORUBICIN
     Indication: ADRENOCORTICAL CARCINOMA
     Dosage: 33 MILLIGRAM DAILY;
     Route: 041
     Dates: start: 20150910, end: 20150911
  5. TRANDATE [Interacting]
     Active Substance: LABETALOL HYDROCHLORIDE
     Dosage: 1050 MILLIGRAM DAILY; CONTINUING
     Route: 048
     Dates: start: 201507
  6. MITOTANE [Interacting]
     Active Substance: MITOTANE
     Dosage: 1500 MG-2000 MG-1500 MG-2000 MG
     Route: 048
     Dates: start: 20150908, end: 20150910
  7. CLEXANE [Suspect]
     Active Substance: ENOXAPARIN SODIUM
     Indication: PULMONARY EMBOLISM
     Dosage: 70 MILLIGRAM DAILY; CONTINUING
     Route: 058
     Dates: start: 201507
  8. COMILORID [Interacting]
     Active Substance: HYDROCHLOROTHIAZIDE
     Indication: PERICARDIAL EFFUSION
     Dosage: 100 MILLIGRAM DAILY;
     Route: 048
     Dates: start: 20150814, end: 20150911
  9. MITOTANE [Interacting]
     Active Substance: MITOTANE
     Indication: ADRENOCORTICAL CARCINOMA
     Dosage: 1500 MG-1500 MG-1500 MG-1000 MG
     Route: 048
     Dates: start: 20150706, end: 20150908
  10. AMLODIPIN [Concomitant]
     Active Substance: AMLODIPINE BESYLATE
     Dosage: 5 MILLIGRAM DAILY; CONTINUING
     Route: 048
     Dates: start: 201507
  11. FLORINEF ACETATE [Concomitant]
     Active Substance: FLUDROCORTISONE ACETATE
     Dosage: .1 MILLIGRAM DAILY; CONTINUING
     Route: 048
     Dates: start: 201507
  12. NEXIUM [Concomitant]
     Active Substance: ESOMEPRAZOLE MAGNESIUM
     Dosage: 40 MILLIGRAM DAILY;
     Route: 048
     Dates: start: 201507
  13. INDERAL [Interacting]
     Active Substance: PROPRANOLOL HYDROCHLORIDE
     Dosage: 90 MILLIGRAM DAILY; CONTINUING
     Route: 048
     Dates: start: 20150814
  14. HYDROCORTISONE. [Concomitant]
     Active Substance: HYDROCORTISONE
     Route: 048
     Dates: start: 201507
  15. PREDNISONE. [Concomitant]
     Active Substance: PREDNISONE
     Dosage: 6.25 MILLIGRAM DAILY;
     Route: 048
     Dates: start: 20150812

REACTIONS (7)
  - Metabolic acidosis [Recovered/Resolved]
  - Hypoaldosteronism [Recovered/Resolved]
  - Hyperkalaemia [Recovered/Resolved]
  - Hyponatraemia [Recovered/Resolved]
  - Off label use [Unknown]
  - Drug interaction [Unknown]
  - Renal failure [Recovering/Resolving]

NARRATIVE: CASE EVENT DATE: 201507
